FAERS Safety Report 15680924 (Version 3)
Quarter: 2020Q3

REPORT INFORMATION
  Report Type: Report from Study
  Country: PL (occurrence: PL)
  Receive Date: 20181203
  Receipt Date: 20190401
  Transmission Date: 20201104
  Serious: Yes (Hospitalization, Disabling, Other)
  Sender: FDA-Public Use
  Company Number: PL-JNJFOC-20181132454

PATIENT
  Age: 81 Year
  Sex: Male
  Weight: 97.5 kg

DRUGS (3)
  1. CLOPIDOGREL [Concomitant]
     Active Substance: CLOPIDOGREL BISULFATE
     Route: 065
  2. IBRUTINIB [Suspect]
     Active Substance: IBRUTINIB
     Route: 048
  3. IBRUTINIB [Suspect]
     Active Substance: IBRUTINIB
     Indication: CHRONIC LYMPHOCYTIC LEUKAEMIA
     Route: 048
     Dates: start: 20180913, end: 20181216

REACTIONS (1)
  - Haematuria [Recovered/Resolved]

NARRATIVE: CASE EVENT DATE: 20181114
